FAERS Safety Report 5525125-9 (Version None)
Quarter: 2007Q4

REPORT INFORMATION
  Report Type: 
  Country: None (occurrence: None)
  Receive Date: 20071119
  Receipt Date: 20071108
  Transmission Date: 20080405
  Serious: Yes (Other)
  Sender: FDA-Public Use
  Company Number: 2007SP020799

PATIENT
  Age: 54 Year
  Sex: Female

DRUGS (4)
  1. PEG-INTRON [Suspect]
     Indication: HEPATITIS B
     Dosage: ;SC
     Route: 058
     Dates: start: 20071002, end: 20071015
  2. PEG-INTRON [Suspect]
     Indication: HEPATITIS C
     Dosage: ;SC
     Route: 058
     Dates: start: 20071002, end: 20071015
  3. RIBAVIRIN [Suspect]
     Indication: HEPATITIS B
     Dosage: ;PO
     Route: 048
     Dates: start: 20071002, end: 20071015
  4. RIBAVIRIN [Suspect]
     Indication: HEPATITIS C
     Dosage: ;PO
     Route: 048
     Dates: start: 20071002, end: 20071015

REACTIONS (22)
  - ANXIETY [None]
  - BACK PAIN [None]
  - BLOOD TEST ABNORMAL [None]
  - COLD SWEAT [None]
  - CRYING [None]
  - DEHYDRATION [None]
  - DEPRESSION [None]
  - DIZZINESS [None]
  - DYSGEUSIA [None]
  - EAR INFECTION [None]
  - INFLUENZA [None]
  - INSOMNIA [None]
  - MIGRAINE [None]
  - MOBILITY DECREASED [None]
  - MUSCLE SPASMS [None]
  - NAUSEA [None]
  - ORAL INTAKE REDUCED [None]
  - PAIN IN EXTREMITY [None]
  - PHARYNGEAL OEDEMA [None]
  - PYREXIA [None]
  - VISION BLURRED [None]
  - VOMITING [None]
